FAERS Safety Report 14783758 (Version 1)
Quarter: 2018Q2

REPORT INFORMATION
  Report Type: Spontaneous
  Country: CH (occurrence: CH)
  Receive Date: 20180420
  Receipt Date: 20180420
  Transmission Date: 20180711
  Serious: Yes (Disabling)
  Sender: FDA-Public Use
  Company Number: CH-LPDUSPRD-20180626

PATIENT
  Age: 58 Year
  Sex: Female
  Weight: 70 kg

DRUGS (1)
  1. FERINJECT [Suspect]
     Active Substance: FERRIC CARBOXYMALTOSE
     Dosage: 500 MG
     Route: 041
     Dates: start: 201802, end: 201802

REACTIONS (4)
  - Infusion site extravasation [Recovered/Resolved with Sequelae]
  - Infusion site erythema [Recovered/Resolved with Sequelae]
  - Infusion site swelling [Recovered/Resolved with Sequelae]
  - Infusion site discolouration [Recovered/Resolved with Sequelae]

NARRATIVE: CASE EVENT DATE: 201802
